FAERS Safety Report 7433108-7 (Version None)
Quarter: 2011Q2

REPORT INFORMATION
  Report Type: 
  Country: None (occurrence: None)
  Receive Date: 20110422
  Receipt Date: 20110415
  Transmission Date: 20111010
  Serious: No
  Sender: FDA-Public Use
  Company Number: US-B.I. PHARMACEUTICALS,INC./RIDGEFIELD-2010-BP-14628BP

PATIENT
  Sex: Female

DRUGS (19)
  1. PRANDIN [Concomitant]
     Indication: DIABETES MELLITUS
     Dosage: 1/2 TAB WITH EACH MEAL
     Route: 048
  2. FISH OIL [Concomitant]
     Route: 048
  3. LISINOPRIL [Concomitant]
     Dosage: 5 MG
     Route: 048
  4. METOPROLOL TARTRATE [Concomitant]
     Dosage: 1 1/2 TAB DAILY
     Route: 048
  5. ADVAIR HFA [Concomitant]
     Dosage: 250/50
     Route: 048
  6. LORATADINE [Concomitant]
     Dosage: 10 MG
     Route: 048
  7. PREVACID [Concomitant]
     Dosage: ONE DAILY BEFORE A MEAL
     Route: 048
  8. PRADAXA [Suspect]
     Indication: ATRIAL FIBRILLATION
     Dosage: 300 MG
     Route: 048
     Dates: start: 20101209
  9. ASPIRIN [Concomitant]
     Dosage: 81 MG
     Route: 048
  10. BISCOLAX [Concomitant]
     Indication: CONSTIPATION
     Dosage: ONE DAILY AS NEEDED
     Route: 054
  11. PRAVASTATIN [Concomitant]
     Dosage: 1 1/2 TAB DAILY
     Route: 048
  12. AMOXICILLIN [Concomitant]
     Route: 048
  13. ESTER C [Concomitant]
     Route: 048
  14. REPAGLINIDE [Concomitant]
     Dosage: THREE TIMES DAILY BEFORE MEALS
     Route: 048
  15. FLUOCINOLONE ACETONIDE [Concomitant]
     Dosage: APPLY AS DIRECTED
  16. CALCIUM WITH D [Concomitant]
     Route: 048
  17. NASONEX [Concomitant]
     Dosage: NASAL SPRAY; 2 SPRAYS EACH NOSTRIL DAILY AS NEEDED
     Route: 045
  18. PROAIR HFA [Concomitant]
     Dosage: 2 PUFFS EVERY 6 HOURS PRN
     Route: 055
  19. CENTRUM SILVER [Concomitant]
     Route: 048

REACTIONS (3)
  - CONTUSION [None]
  - HEADACHE [None]
  - MIGRAINE [None]
